FAERS Safety Report 17103306 (Version 1)
Quarter: 2019Q4

REPORT INFORMATION
  Report Type: Spontaneous
  Country: US (occurrence: US)
  Receive Date: 20191202
  Receipt Date: 20191202
  Transmission Date: 20200122
  Serious: Yes (Hospitalization)
  Sender: FDA-Public Use
  Company Number: None

PATIENT
  Age: 40 Year
  Sex: Female

DRUGS (8)
  1. IBRANCE [Suspect]
     Active Substance: PALBOCICLIB
     Indication: BREAST CANCER FEMALE
     Route: 048
  2. PANTOPRAZOLE [Concomitant]
     Active Substance: PANTOPRAZOLE
  3. TRAMADOL. [Concomitant]
     Active Substance: TRAMADOL
  4. VOLTAREN [Concomitant]
     Active Substance: DICLOFENAC SODIUM
  5. LETROZOLE. [Concomitant]
     Active Substance: LETROZOLE
  6. ONDANSETRON [Concomitant]
     Active Substance: ONDANSETRON
  7. VENLAFAXINE [Concomitant]
     Active Substance: VENLAFAXINE HYDROCHLORIDE
  8. CALCIUM + VIT D3 [Concomitant]

REACTIONS (3)
  - Gait inability [None]
  - Spinal disorder [None]
  - Neoplasm [None]

NARRATIVE: CASE EVENT DATE: 20191127
